FAERS Safety Report 16771357 (Version 1)
Quarter: 2019Q3

REPORT INFORMATION
  Report Type: Spontaneous
  Country: US (occurrence: US)
  Receive Date: 20190715
  Receipt Date: 20190715
  Transmission Date: 20191005
  Serious: No
  Sender: FDA-Public Use
  Company Number: None

PATIENT
  Age: 63 Year
  Sex: Female

DRUGS (5)
  1. AFINITOR [Suspect]
     Active Substance: EVEROLIMUS
  2. EXEMSTANE [Suspect]
     Active Substance: EXEMESTANE
  3. METOPROLOL /HCTZ [Concomitant]
  4. ELIQUIS [Concomitant]
     Active Substance: APIXABAN
  5. CAPECITABINE. [Concomitant]
     Active Substance: CAPECITABINE

REACTIONS (2)
  - Disease progression [None]
  - Migraine [None]

NARRATIVE: CASE EVENT DATE: 20190715
